FAERS Safety Report 20807656 (Version 2)
Quarter: 2022Q2

REPORT INFORMATION
  Report Type: Spontaneous
  Country: DE (occurrence: DE)
  Receive Date: 20220510
  Receipt Date: 20220516
  Transmission Date: 20220721
  Serious: Yes (Hospitalization, Other)
  Sender: FDA-Public Use
  Company Number: DE-MYLANLABS-2022M1034500

PATIENT
  Age: 38 Year
  Sex: Female

DRUGS (5)
  1. AMISULPRIDE [Suspect]
     Active Substance: AMISULPRIDE
     Indication: Schizophrenia
     Dosage: 200 MILLIGRAM, TID (THRICE A DAY)
     Route: 065
  2. OLANZAPINE [Suspect]
     Active Substance: OLANZAPINE
     Indication: Schizophrenia
     Dosage: 5 MILLIGRAM, BID
     Route: 065
  3. CLOZAPINE [Suspect]
     Active Substance: CLOZAPINE
     Indication: Schizophrenia
     Dosage: 200 MILLIGRAM, QD
     Route: 065
  4. BENPERIDOL [Suspect]
     Active Substance: BENPERIDOL
     Indication: Schizophrenia
     Dosage: 2 MILLIGRAM
     Route: 065
  5. BENPERIDOL [Suspect]
     Active Substance: BENPERIDOL
     Dosage: 3 MILLIGRAM
     Route: 065

REACTIONS (5)
  - Drug ineffective [Unknown]
  - Extrapyramidal disorder [Unknown]
  - Psychotic disorder [Unknown]
  - Memory impairment [Unknown]
  - Anticholinergic syndrome [Unknown]
